FAERS Safety Report 18253251 (Version 1)
Quarter: 2020Q3

REPORT INFORMATION
  Report Type: Spontaneous
  Country: DE (occurrence: DE)
  Receive Date: 20200910
  Receipt Date: 20200910
  Transmission Date: 20201103
  Serious: Yes (Hospitalization)
  Sender: FDA-Public Use
  Company Number: NVSC2020DE243826

PATIENT
  Age: 92 Year
  Sex: Female
  Weight: 60 kg

DRUGS (20)
  1. AMLODIPIN [Concomitant]
     Active Substance: AMLODIPINE BESYLATE
     Indication: HYPERTENSION
     Dosage: 5 MG, Q12H
     Route: 048
     Dates: start: 20200825
  2. HCT [Concomitant]
     Active Substance: HYDROCHLOROTHIAZIDE
     Indication: OLIGURIA
     Dosage: 12.5 MG, QD(12.5?0?0)
     Route: 065
  3. PIPAMPERONE [Concomitant]
     Active Substance: PIPAMPERONE
     Indication: PRODUCT USED FOR UNKNOWN INDICATION
     Dosage: UNK
     Route: 065
  4. BISOPROLOL [Concomitant]
     Active Substance: BISOPROLOL
     Indication: HYPERTENSION
     Dosage: 5 MG, Q12H(NACH BEDARF ABENDS AUCH NUR 2.5 MG)
     Route: 048
  5. SIMVASTATIN. [Concomitant]
     Active Substance: SIMVASTATIN
     Indication: PRODUCT USED FOR UNKNOWN INDICATION
     Dosage: 10 MG, QD(0?0?1)
     Route: 048
  6. TORASEMID [Concomitant]
     Active Substance: TORSEMIDE
     Indication: PRODUCT USED FOR UNKNOWN INDICATION
     Dosage: UNK
     Route: 065
  7. GABAPENTIN. [Concomitant]
     Active Substance: GABAPENTIN
     Indication: PRODUCT USED FOR UNKNOWN INDICATION
     Dosage: 600 MG, QD
     Route: 065
     Dates: start: 20200615, end: 20200619
  8. PANTOPRAZOL [Suspect]
     Active Substance: PANTOPRAZOLE SODIUM
     Indication: GASTRITIS
     Dosage: 40 MG, Q12H(1?0?1)
     Route: 048
     Dates: start: 201807
  9. MIRTAZAPIN [Concomitant]
     Active Substance: MIRTAZAPINE
     Indication: PRODUCT USED FOR UNKNOWN INDICATION
     Dosage: 15 MG
     Route: 065
  10. LANTUS [Concomitant]
     Active Substance: INSULIN GLARGINE
     Indication: PRODUCT USED FOR UNKNOWN INDICATION
     Dosage: 8 IU, QD (1?0?0 EINNAHME REGELM??IG MORGENS SEIT 2018/2019)
     Route: 065
     Dates: start: 2018
  11. RISPERIDON [Concomitant]
     Active Substance: RISPERIDONE
     Indication: PRODUCT USED FOR UNKNOWN INDICATION
     Dosage: UNK
     Route: 065
  12. LACTULOSE. [Concomitant]
     Active Substance: LACTULOSE
     Indication: CONSTIPATION
     Dosage: 10 ML, Q8H(3X10 ML SEIT 2 JAHREN)
     Route: 065
     Dates: start: 2018
  13. GABAPENTIN. [Concomitant]
     Active Substance: GABAPENTIN
     Dosage: 200 MG, QD
     Route: 065
     Dates: start: 20200626
  14. L?THYROXINE [Concomitant]
     Active Substance: LEVOTHYROXINE
     Indication: HYPERTHYROIDISM
     Dosage: 50 UG, QD(1?0?0)
     Route: 065
     Dates: start: 2007
  15. TELMISARTAN. [Concomitant]
     Active Substance: TELMISARTAN
     Indication: HYPERTENSION
     Dosage: 40 MG, Q12H
     Route: 048
  16. PANTOPRAZOL [Suspect]
     Active Substance: PANTOPRAZOLE SODIUM
     Dosage: 20 MG, Q12H(ZWISCHENDURCH WURDE DIE DOSIS AUF 20 MG REDUZIERT)
     Route: 065
     Dates: end: 20200606
  17. ASPIRIN. [Concomitant]
     Active Substance: ASPIRIN
     Indication: ARTERIOSCLEROSIS
     Dosage: 1 DF, QD
     Route: 048
     Dates: end: 20200114
  18. APIXABAN [Concomitant]
     Active Substance: APIXABAN
     Indication: PRODUCT USED FOR UNKNOWN INDICATION
     Dosage: 5 MG, Q12H
     Route: 065
  19. APIXABAN [Concomitant]
     Active Substance: APIXABAN
     Dosage: 2.5 MG, Q12H(2.5?0?2.5)
     Route: 065
     Dates: start: 20200820
  20. ESOMEPRAZOL [Suspect]
     Active Substance: ESOMEPRAZOLE
     Indication: GASTRITIS
     Dosage: 20 MG, Q12H(1?0?1)
     Route: 048
     Dates: start: 20200607, end: 20200824

REACTIONS (6)
  - Adverse reaction [Unknown]
  - Restlessness [Unknown]
  - Nausea [Unknown]
  - Sleep disorder [Unknown]
  - Headache [Unknown]
  - Anxiety [Unknown]

NARRATIVE: CASE EVENT DATE: 201807
